FAERS Safety Report 6345197-1 (Version None)
Quarter: 2009Q3

REPORT INFORMATION
  Report Type: 
  Country: None (occurrence: None)
  Receive Date: 20090909
  Receipt Date: 20090902
  Transmission Date: 20100115
  Serious: Yes (Other)
  Sender: FDA-Public Use
  Company Number: US-JNJFOC-20090901431

PATIENT
  Age: 21 Year
  Sex: Female
  Weight: 56.7 kg

DRUGS (4)
  1. MONISTAT 1 UNSPECIFIED [Suspect]
     Route: 067
  2. MONISTAT 1 UNSPECIFIED [Suspect]
     Indication: FUNGAL INFECTION
     Route: 067
  3. MONISTAT 1 UNSPECIFIED [Suspect]
     Route: 061
  4. MONISTAT 1 UNSPECIFIED [Suspect]
     Route: 061

REACTIONS (1)
  - VAGINAL HAEMORRHAGE [None]
